FAERS Safety Report 6868914-0 (Version None)
Quarter: 2010Q3

REPORT INFORMATION
  Report Type: 
  Country: None (occurrence: None)
  Receive Date: 20100722
  Receipt Date: 20080811
  Transmission Date: 20110219
  Serious: Yes (Other)
  Sender: FDA-Public Use
  Company Number: US-PFIZER INC-2008052571

PATIENT
  Sex: Female
  Weight: 74.8 kg

DRUGS (1)
  1. CHANTIX [Suspect]
     Indication: SMOKING CESSATION THERAPY
     Route: 048
     Dates: start: 20071025, end: 20080501

REACTIONS (6)
  - CHEST PAIN [None]
  - DECREASED APPETITE [None]
  - DEPRESSION [None]
  - MALAISE [None]
  - NAUSEA [None]
  - URTICARIA [None]
